FAERS Safety Report 10561439 (Version 2)
Quarter: 2015Q1

REPORT INFORMATION
  Report Type: Spontaneous
  Country: JP (occurrence: JP)
  Receive Date: 20141103
  Receipt Date: 20150210
  Transmission Date: 20150720
  Serious: Yes (Death)
  Sender: FDA-Public Use
  Company Number: JP-TEVA-518548ISR

PATIENT
  Sex: Female
  Weight: 30 kg

DRUGS (29)
  1. OXINORM [Concomitant]
     Active Substance: OXYCODONE HYDROCHLORIDE
     Route: 048
     Dates: start: 20140813
  2. ELNEOPA NO.2 [Concomitant]
     Active Substance: AMINO ACIDS\CARBOHYDRATES\ELECTROLYTES NOS\VITAMINS
     Dosage: 8 DOSAGE FORMS DAILY;
     Route: 041
  3. HEPARIN NA LOCK [Concomitant]
     Dosage: 16 DOSAGE FORMS DAILY;
     Route: 042
  4. DECADRON [Concomitant]
     Active Substance: DEXAMETHASONE
     Dosage: 1 DOSAGE FORMS DAILY;
     Route: 042
     Dates: start: 20140825, end: 20140825
  5. GASTER [Concomitant]
     Active Substance: FAMOTIDINE
     Route: 042
     Dates: start: 20140903, end: 20140904
  6. E-FEN BUCCAL [Suspect]
     Active Substance: FENTANYL CITRATE
     Indication: BREAKTHROUGH PAIN
     Dosage: 100 MICROGRAM DAILY;
     Route: 002
     Dates: start: 20140813, end: 20140813
  7. FENTOS [Concomitant]
     Active Substance: FENTANYL
     Dosage: 4 MILLIGRAM DAILY;
     Route: 062
     Dates: start: 20140817
  8. VERAPAMIL HCL [Concomitant]
     Active Substance: VERAPAMIL HYDROCHLORIDE
     Dosage: 10 MILLIGRAM DAILY;
     Route: 054
     Dates: start: 20140904, end: 20140904
  9. OXINORM [Concomitant]
     Active Substance: OXYCODONE HYDROCHLORIDE
     Indication: BREAKTHROUGH PAIN
     Route: 048
     Dates: end: 20140813
  10. NEXIUM [Concomitant]
     Active Substance: ESOMEPRAZOLE MAGNESIUM
     Dosage: 20 MILLIGRAM DAILY;
     Route: 048
  11. RINDERON V [Concomitant]
     Active Substance: BETAMETHASONE VALERATE
     Dosage: 2 DOSAGE FORMS DAILY;
     Route: 042
     Dates: start: 20140813, end: 20140813
  12. GEMZAR [Concomitant]
     Active Substance: GEMCITABINE HYDROCHLORIDE
     Route: 042
     Dates: start: 20140825, end: 20140825
  13. GLUCOSE [Concomitant]
     Active Substance: DEXTROSE
     Dosage: 1 DOSAGE FORMS DAILY;
     Route: 042
     Dates: start: 20140825, end: 20140825
  14. PRIMPERAN [Concomitant]
     Active Substance: METOCLOPRAMIDE HYDROCHLORIDE
     Dosage: 1 DOSAGE FORMS DAILY;
     Route: 042
     Dates: start: 20140902, end: 20140904
  15. FENTOS [Concomitant]
     Active Substance: FENTANYL
     Indication: CANCER PAIN
     Dosage: 2 MILLIGRAM DAILY;
     Route: 062
     Dates: end: 20140817
  16. LAXOBERON [Concomitant]
     Active Substance: SODIUM PICOSULFATE
     Dosage: 1 DOSAGE FORMS DAILY;
     Route: 042
     Dates: start: 20140820, end: 20140821
  17. PURSENNID [Concomitant]
     Active Substance: SENNOSIDES A AND B
     Dosage: 24 MILLIGRAM DAILY;
     Route: 048
     Dates: start: 20140825, end: 20140826
  18. LYRICA [Concomitant]
     Active Substance: PREGABALIN
     Indication: CANCER PAIN
     Route: 048
     Dates: start: 20140813, end: 20140914
  19. BFLUID [Concomitant]
     Active Substance: AMINO ACIDS\DEXTROSE\ELECTROLYTES NOS\VITAMINS
     Dosage: 8 DOSAGE FORMS DAILY;
     Route: 041
  20. RINDERON V [Concomitant]
     Active Substance: BETAMETHASONE VALERATE
     Dosage: 8 MILLIGRAM DAILY;
     Route: 048
     Dates: start: 20140813, end: 20140819
  21. WYPAX [Concomitant]
     Active Substance: LORAZEPAM
     Indication: CANCER PAIN
     Route: 048
     Dates: start: 20140813, end: 20140905
  22. LANDSEN [Concomitant]
     Active Substance: CLONAZEPAM
     Indication: CANCER PAIN
     Route: 048
     Dates: start: 20140813
  23. MAGMITT [Concomitant]
     Active Substance: MAGNESIUM OXIDE
     Dosage: 1980 MILLIGRAM DAILY;
     Route: 048
  24. RINDERON V [Concomitant]
     Active Substance: BETAMETHASONE VALERATE
     Dosage: 4 MILLIGRAM DAILY;
     Route: 048
     Dates: start: 20140820
  25. NORMAL SALINE [Concomitant]
     Active Substance: SODIUM CHLORIDE
     Dosage: 1 DOSAGE FORMS DAILY;
     Route: 042
     Dates: start: 20140813
  26. GEMZAR [Concomitant]
     Active Substance: GEMCITABINE HYDROCHLORIDE
     Route: 042
     Dates: start: 20140825, end: 20140825
  27. LORAZEPAM. [Concomitant]
     Active Substance: LORAZEPAM
     Dosage: 1.5 MILLIGRAM DAILY;
     Route: 048
     Dates: start: 20140825, end: 20140831
  28. E-FEN BUCCAL [Suspect]
     Active Substance: FENTANYL CITRATE
     Dosage: 100 MICROGRAM DAILY;
     Route: 002
     Dates: start: 20140814, end: 20140821
  29. XYLOCAINE [Concomitant]
     Active Substance: LIDOCAINE HYDROCHLORIDE
     Dosage: 1 DOSAGE FORMS DAILY;
     Route: 042
     Dates: start: 20140903, end: 20140904

REACTIONS (1)
  - Pancreatic carcinoma [Fatal]
